FAERS Safety Report 8364788-X (Version None)
Quarter: 2012Q2

REPORT INFORMATION
  Report Type: 
  Country: None (occurrence: None)
  Receive Date: 20120516
  Receipt Date: 20120508
  Transmission Date: 20120825
  Serious: Yes (Death, Other)
  Sender: FDA-Public Use
  Company Number: JP-CELGENEUS-087-50794-12051696

PATIENT
  Sex: Male
  Weight: 66 kg

DRUGS (23)
  1. LANSOPRAZOLE [Concomitant]
     Route: 065
     Dates: start: 20111024
  2. POVIDONE IODINE [Concomitant]
     Route: 048
     Dates: start: 20111024, end: 20111110
  3. TRANSAMINE CAP [Concomitant]
     Route: 065
     Dates: start: 20111024
  4. ADONA [Concomitant]
     Route: 065
     Dates: start: 20111024
  5. MEROPENEM [Concomitant]
     Route: 065
     Dates: start: 20111128, end: 20111207
  6. MEROPENEM [Concomitant]
     Route: 065
     Dates: start: 20120101, end: 20120113
  7. CIPROFLOXACIN [Concomitant]
     Route: 065
     Dates: start: 20111125, end: 20111128
  8. GRAN [Concomitant]
     Route: 065
     Dates: start: 20111118, end: 20111207
  9. EXJADE [Concomitant]
     Route: 065
     Dates: start: 20111112, end: 20111229
  10. LOXONIN [Concomitant]
     Route: 065
     Dates: start: 20111115
  11. MAGMITT [Concomitant]
     Route: 065
     Dates: start: 20111024
  12. GRANISETRON HCL [Concomitant]
     Route: 065
     Dates: start: 20120123, end: 20120129
  13. AZUNOL [Concomitant]
     Route: 048
     Dates: start: 20111111
  14. PURSENNID [Concomitant]
     Route: 065
     Dates: start: 20111212
  15. GRANISETRON HCL [Concomitant]
     Route: 065
     Dates: start: 20111024, end: 20111215
  16. MEROPENEM [Concomitant]
     Route: 065
     Dates: start: 20111024, end: 20111125
  17. DEXALTIN [Concomitant]
     Route: 065
     Dates: start: 20111105
  18. LEVOFLOXACIN [Concomitant]
     Route: 065
     Dates: start: 20111209, end: 20111216
  19. VIDAZA [Suspect]
     Dosage: 75 MILLIGRAM/SQ. METER
     Route: 058
     Dates: start: 20111024, end: 20111030
  20. VIDAZA [Suspect]
     Dosage: 75 MILLIGRAM/SQ. METER
     Route: 058
     Dates: start: 20111209, end: 20111215
  21. VIDAZA [Suspect]
     Dosage: 37.5 MILLIGRAM/SQ. METER
     Route: 058
     Dates: start: 20120123, end: 20120129
  22. POLYMYXIN B SULFATE [Concomitant]
     Route: 065
     Dates: start: 20111024
  23. FLUOROMETHOLONE [Concomitant]
     Route: 065
     Dates: start: 20111209, end: 20111216

REACTIONS (1)
  - LUNG INFECTION PSEUDOMONAL [None]
